FAERS Safety Report 20436262 (Version 1)
Quarter: 2022Q1

REPORT INFORMATION
  Report Type: Other
  Country: None (occurrence: US)
  Receive Date: 20220207
  Receipt Date: 20220207
  Transmission Date: 20220423
  Serious: Yes (Hospitalization, Other)
  Sender: FDA-Public Use
  Company Number: US-Ajanta Pharma USA Inc.-2124673

PATIENT
  Age: 80 Year
  Sex: Male

DRUGS (6)
  1. DOXYCYCLINE HYCLATE [Suspect]
     Active Substance: DOXYCYCLINE HYCLATE
     Indication: Skin infection
  2. ASPIRIN [Concomitant]
     Active Substance: ASPIRIN
  3. NEBIVOLOL [Concomitant]
     Active Substance: NEBIVOLOL
  4. FENOFIBRATE [Concomitant]
     Active Substance: FENOFIBRATE
  5. LOVASTATIN [Concomitant]
     Active Substance: LOVASTATIN
  6. TAMSULOSIN HYDROCHLORIDE [Concomitant]
     Active Substance: TAMSULOSIN HYDROCHLORIDE

REACTIONS (1)
  - Acquired haemophilia [Recovering/Resolving]
